FAERS Safety Report 7852191-8 (Version None)
Quarter: 2011Q4

REPORT INFORMATION
  Report Type: 
  Country: None (occurrence: None)
  Receive Date: 20111026
  Receipt Date: 20111021
  Transmission Date: 20120403
  Serious: Yes (Other)
  Sender: FDA-Public Use
  Company Number: US-PFIZER INC-2011256452

PATIENT
  Sex: Female
  Weight: 48.073 kg

DRUGS (7)
  1. SEROQUEL [Suspect]
     Dosage: 400 MG, UNK
     Route: 048
     Dates: start: 20080901, end: 20100901
  2. LAMICTAL [Concomitant]
     Dosage: UNK
  3. AMBIEN [Concomitant]
     Dosage: UNK
  4. GEODON [Suspect]
     Dosage: UNK
  5. PROVIGIL [Suspect]
     Indication: DEPRESSION
     Dosage: 200 MG, 1X/DAY
     Route: 048
     Dates: start: 20070401, end: 20101222
  6. ALPRAZOLAM [Concomitant]
     Dosage: UNK
  7. CALCIUM MEFOLINATE [Concomitant]
     Dosage: UNK

REACTIONS (3)
  - IMPAIRED DRIVING ABILITY [None]
  - WEIGHT DECREASED [None]
  - VISUAL IMPAIRMENT [None]
